FAERS Safety Report 8593988-9 (Version None)
Quarter: 2012Q3

REPORT INFORMATION
  Report Type: 
  Country: None (occurrence: None)
  Receive Date: 20120814
  Receipt Date: 20120731
  Transmission Date: 20120928
  Serious: No
  Sender: FDA-Public Use
  Company Number: US-ASTRAZENECA-2012SE54192

PATIENT
  Age: 75 Year
  Sex: Female
  Weight: 55.8 kg

DRUGS (4)
  1. DIGOXIN [Concomitant]
     Indication: CARDIAC DISORDER
  2. METOPROLOL SUCCINATE EXTENDED RELEASE [Suspect]
     Indication: BLOOD PRESSURE ABNORMAL
     Route: 048
  3. CRESTOR [Suspect]
     Indication: BLOOD CHOLESTEROL
     Route: 048
     Dates: start: 20120703, end: 20120729
  4. LISINOPRIL [Suspect]
     Indication: BLOOD PRESSURE ABNORMAL
     Route: 048

REACTIONS (7)
  - RASH PRURITIC [None]
  - RASH ERYTHEMATOUS [None]
  - DECREASED APPETITE [None]
  - FATIGUE [None]
  - URTICARIA [None]
  - NIGHT SWEATS [None]
  - HEADACHE [None]
